FAERS Safety Report 9499934 (Version 2)
Quarter: 2013Q3

REPORT INFORMATION
  Report Type: Spontaneous
  Country: US (occurrence: US)
  Receive Date: 20130905
  Receipt Date: 20130911
  Transmission Date: 20140515
  Serious: No
  Sender: FDA-Public Use
  Company Number: US-PFIZER INC-2013255162

PATIENT
  Sex: Male

DRUGS (6)
  1. ZOLOFT [Suspect]
     Indication: DEPRESSION
     Dosage: UNK
     Route: 048
  2. ZOLOFT [Suspect]
     Dosage: 150 MG, 1X/DAY (THREE TABLETS OF 50MG ONCE A DAY)
     Route: 048
  3. ASPIRIN [Concomitant]
     Dosage: UNK, 1X/DAY
  4. LOVAZA [Concomitant]
     Dosage: UNK
  5. LEVOTHYROXINE [Concomitant]
     Dosage: UNK
  6. CRESTOR [Concomitant]
     Dosage: UNK

REACTIONS (4)
  - Mood swings [Unknown]
  - Irritability [Unknown]
  - Sleep disorder [Unknown]
  - Drug ineffective [Unknown]
